FAERS Safety Report 10992409 (Version 4)
Quarter: 2015Q3

REPORT INFORMATION
  Report Type: Spontaneous
  Country: DE (occurrence: DE)
  Receive Date: 20150406
  Receipt Date: 20150715
  Transmission Date: 20151125
  Serious: Yes (Death, Hospitalization)
  Sender: FDA-Public Use
  Company Number: PHHY2015DE038519

PATIENT
  Age: 41 Year
  Sex: Male

DRUGS (7)
  1. RASILEZ [Suspect]
     Active Substance: ALISKIREN
     Indication: HYPERTENSION
     Dosage: 0.5 DF (300MG), BID
     Route: 065
  2. ALLOPURINOL. [Concomitant]
     Active Substance: ALLOPURINOL
     Indication: HYPERURICAEMIA
     Dosage: 1 DF (300 MG), QD
     Route: 065
  3. CARMEN [Concomitant]
     Active Substance: LERCANIDIPINE
     Indication: HYPERTENSION
     Dosage: 1 DF (20 MG), QD
     Route: 065
  4. ATACAND [Suspect]
     Active Substance: CANDESARTAN CILEXETIL
     Indication: HYPERTENSION
     Dosage: 1 DF (16 MG), BID
     Route: 065
  5. DIAZEPAM. [Concomitant]
     Active Substance: DIAZEPAM
     Indication: PRODUCT USED FOR UNKNOWN INDICATION
     Dosage: 1 DF (2 MG), QD
     Route: 065
  6. CARVEDIOL [Suspect]
     Active Substance: CARVEDILOL
     Indication: HYPERTENSION
     Dosage: 0.5 DF (12.5 MG), BID
     Route: 065
     Dates: start: 20150129
  7. MOXONIDINE [Concomitant]
     Active Substance: MOXONIDINE
     Indication: HYPERTENSION
     Dosage: 1 DF (0.2 MG), TID
     Route: 065
     Dates: start: 20150129

REACTIONS (10)
  - Pleural effusion [Fatal]
  - Chest pain [Fatal]
  - Pain in extremity [Fatal]
  - Hypertensive crisis [Fatal]
  - Acute right ventricular failure [Fatal]
  - Glomerular filtration rate decreased [Unknown]
  - Nausea [Unknown]
  - Cyanosis [Fatal]
  - Pulmonary oedema [Fatal]
  - Wrong technique in product usage process [Unknown]

NARRATIVE: CASE EVENT DATE: 20150211
